FAERS Safety Report 9384379 (Version 2)
Quarter: 2013Q3

REPORT INFORMATION
  Report Type: Spontaneous
  Country: BR (occurrence: BR)
  Receive Date: 20130705
  Receipt Date: 20130910
  Transmission Date: 20140515
  Serious: Yes (Other)
  Sender: FDA-Public Use
  Company Number: PHHY2013BR070599

PATIENT
  Sex: Female

DRUGS (4)
  1. DIOVAN HCT [Suspect]
     Indication: HYPERTENSION
     Dosage: 1 DF, DAILY
     Route: 048
  2. ZETSIM [Concomitant]
     Indication: CARDIOVASCULAR EVENT PROPHYLAXIS
     Dosage: 1 DF (10/20MG) DAILY
     Route: 048
     Dates: start: 201303
  3. ATENOLOL [Concomitant]
     Indication: CARDIOVASCULAR EVENT PROPHYLAXIS
     Dosage: 25 MG, DAILY
     Route: 048
     Dates: start: 201301
  4. ASPIRIN PROTECT [Concomitant]
     Indication: CARDIOVASCULAR EVENT PROPHYLAXIS
     Dosage: 100 MG, DAILY
     Route: 048
     Dates: start: 201303

REACTIONS (5)
  - Carotid artery occlusion [Recovering/Resolving]
  - Vein disorder [Unknown]
  - Spinal pain [Unknown]
  - Sinusitis [Not Recovered/Not Resolved]
  - Rhinitis [Not Recovered/Not Resolved]
